FAERS Safety Report 24577316 (Version 1)
Quarter: 2024Q4

REPORT INFORMATION
  Report Type: Spontaneous
  Country: PR (occurrence: None)
  Receive Date: 20241104
  Receipt Date: 20241104
  Transmission Date: 20250115
  Serious: Yes (Other)
  Sender: Public
  Company Number: None

PATIENT
  Age: 65 Year
  Sex: Male
  Weight: 145.6 kg

DRUGS (11)
  1. VYVGART HYTRULO [Suspect]
     Active Substance: EFGARTIGIMOD ALFA\HYALURONIDASE-QVFC
     Dosage: FREQUENCY : WEEKLY;?
     Route: 058
  2. Cefadroxil Oral Capsule 500 MG [Concomitant]
  3. Tamsulosin HCl Oral Capsule 0.4 MG [Concomitant]
  4. Vitamin B12 Oral Tablet [Concomitant]
  5. Vitamin D3 Oral Tablet [Concomitant]
  6. Tadalafil Oral Tablet 10MG [Concomitant]
  7. LOSARTAN POTASSIUM [Concomitant]
     Active Substance: LOSARTAN POTASSIUM
  8. Aldactone Oral Tablet 25 MG [Concomitant]
  9. Furosemide Oral Tablet 20 MG [Concomitant]
  10. predniSONE Oral Tablet 5 MG [Concomitant]
  11. Mestinon Oral Tablet 60 MG [Concomitant]

REACTIONS (1)
  - Urine output decreased [None]

NARRATIVE: CASE EVENT DATE: 20241028
